FAERS Safety Report 17925823 (Version 1)
Quarter: 2020Q2

REPORT INFORMATION
  Report Type: Spontaneous
  Country: US (occurrence: US)
  Receive Date: 20200622
  Receipt Date: 20200622
  Transmission Date: 20200714
  Serious: Yes (Other)
  Sender: FDA-Public Use
  Company Number: US-AMERICAN REGENT INC-2020001270

PATIENT
  Age: 1 Year

DRUGS (1)
  1. CHLOROTHIAZIDE SODIUM FOR INJECTION, USP (0517-1820-01) [Suspect]
     Active Substance: CHLOROTHIAZIDE SODIUM
     Indication: PRODUCT USED FOR UNKNOWN INDICATION
     Dosage: UNK
     Route: 065

REACTIONS (2)
  - Pancreatitis acute [Unknown]
  - Product use issue [Unknown]
